FAERS Safety Report 4640598-1 (Version None)
Quarter: 2005Q2

REPORT INFORMATION
  Report Type: 
  Country: None (occurrence: None)
  Receive Date: 20050419
  Receipt Date: 20040716
  Transmission Date: 20051028
  Serious: Yes (Other)
  Sender: FDA-Public Use
  Company Number: 2004048368

PATIENT
  Age: 54 Year
  Sex: Female
  Weight: 61 kg

DRUGS (3)
  1. BENADRYL [Suspect]
     Indication: SEASONAL ALLERGY
     Dosage: 1 TABLET, TWICE, ORAL
     Route: 048
     Dates: start: 20040626, end: 20040628
  2. BENDROFLUMETHIAZIDE (BENDROFLUMETHIAZIDE) [Concomitant]
  3. ATENOLOL [Concomitant]

REACTIONS (1)
  - RASH [None]
